FAERS Safety Report 16675233 (Version 1)
Quarter: 2019Q3

REPORT INFORMATION
  Report Type: Report from Study
  Country: US (occurrence: US)
  Receive Date: 20190806
  Receipt Date: 20190806
  Transmission Date: 20191004
  Serious: Yes (Death)
  Sender: FDA-Public Use
  Company Number: US-ROCHE-2361534

PATIENT
  Age: 53 Year
  Sex: Female

DRUGS (20)
  1. LEVAQUIN [Concomitant]
     Active Substance: LEVOFLOXACIN
     Indication: OFF LABEL USE
     Route: 048
  2. TYLENOL WITH CODEINE [Concomitant]
     Active Substance: ACETAMINOPHEN\CODEINE PHOSPHATE
     Indication: PAIN
     Dosage: 300-30 MG
     Route: 048
  3. TYLENOL WITH CODEINE [Concomitant]
     Active Substance: ACETAMINOPHEN\CODEINE PHOSPHATE
     Indication: OFF LABEL USE
  4. HERCEPTIN [Suspect]
     Active Substance: TRASTUZUMAB
     Indication: OFF LABEL USE
     Route: 042
     Dates: start: 20190108, end: 20190402
  5. HERCEPTIN [Suspect]
     Active Substance: TRASTUZUMAB
     Route: 042
     Dates: start: 20181218, end: 20181218
  6. ZARXIO [Concomitant]
     Active Substance: FILGRASTIM-SNDZ
     Indication: OFF LABEL USE
     Route: 058
  7. HERCEPTIN [Suspect]
     Active Substance: TRASTUZUMAB
     Indication: BREAST CANCER FEMALE
     Dosage: INFUSE 500MG INTRAVENOUSLY EVERY 21 DAY(S)
     Route: 042
  8. FAMOTIDINE. [Concomitant]
     Active Substance: FAMOTIDINE
     Indication: OFF LABEL USE
     Route: 042
  9. PACLITAXEL. [Concomitant]
     Active Substance: PACLITAXEL
     Indication: OFF LABEL USE
  10. ONDANSETRON [Concomitant]
     Active Substance: ONDANSETRON
     Indication: OFF LABEL USE
     Route: 042
  11. PROCHLORPERAZINE. [Concomitant]
     Active Substance: PROCHLORPERAZINE
     Indication: NAUSEA
     Route: 048
  12. VITAMINE D [Concomitant]
     Active Substance: CHOLECALCIFEROL
     Indication: OFF LABEL USE
     Route: 048
  13. PRILOSEC [Concomitant]
     Active Substance: OMEPRAZOLE MAGNESIUM
     Indication: OFF LABEL USE
     Route: 048
  14. ANASTROZOLE. [Concomitant]
     Active Substance: ANASTROZOLE
     Indication: OFF LABEL USE
  15. VELIPARIB [Concomitant]
     Active Substance: VELIPARIB
     Indication: OFF LABEL USE
  16. ASPIRINE [Concomitant]
     Active Substance: ASPIRIN
     Indication: OFF LABEL USE
     Route: 048
  17. CARBOPLATIN. [Concomitant]
     Active Substance: CARBOPLATIN
     Indication: OFF LABEL USE
  18. CAPECITABINE. [Concomitant]
     Active Substance: CAPECITABINE
     Indication: OFF LABEL USE
     Route: 048
     Dates: start: 20160613, end: 20170103
  19. PROCHLORPERAZINE. [Concomitant]
     Active Substance: PROCHLORPERAZINE
     Indication: OFF LABEL USE
  20. DENOSUMAB [Concomitant]
     Active Substance: DENOSUMAB
     Indication: OFF LABEL USE

REACTIONS (3)
  - Death [Fatal]
  - Off label use [Unknown]
  - Intentional product use issue [Unknown]

NARRATIVE: CASE EVENT DATE: 20190516
